FAERS Safety Report 8516365-5 (Version None)
Quarter: 2012Q3

REPORT INFORMATION
  Report Type: 
  Country: None (occurrence: None)
  Receive Date: 20120718
  Receipt Date: 20120709
  Transmission Date: 20120928
  Serious: Yes (Hospitalization)
  Sender: FDA-Public Use
  Company Number: US-BIOGENIDEC-2012BI010144

PATIENT
  Age: 66 Year
  Sex: Female

DRUGS (1)
  1. TYSABRI [Suspect]
     Indication: MULTIPLE SCLEROSIS
     Route: 042
     Dates: start: 20080523, end: 20111025

REACTIONS (11)
  - MULTIPLE SCLEROSIS [None]
  - WHITE BLOOD CELL COUNT DECREASED [None]
  - DISLOCATION OF VERTEBRA [None]
  - ASTHENIA [None]
  - INFLAMMATION [None]
  - DIZZINESS [None]
  - SPINAL OSTEOARTHRITIS [None]
  - SPINAL OPERATION [None]
  - CENTRAL NERVOUS SYSTEM LESION [None]
  - OPTIC NEURITIS [None]
  - MUSCLE SPASTICITY [None]
